FAERS Safety Report 9500920 (Version 1)
Quarter: 2013Q1

REPORT INFORMATION
  Report Type: Spontaneous
  Country: US (occurrence: None)
  Receive Date: 20130107
  Receipt Date: 20130107
  Transmission Date: 20140127
  Serious: No
  Sender: FDA-Public Use
  Company Number: PHEH2012US021206

PATIENT
  Sex: Female

DRUGS (1)
  1. GILENYA [Suspect]
     Indication: MULTIPLE SCLEROSIS
     Route: 048
     Dates: start: 20120625, end: 20121025

REACTIONS (5)
  - Increased upper airway secretion [None]
  - Rhinorrhoea [None]
  - Pulmonary congestion [None]
  - Sinus congestion [None]
  - Dyspnoea [None]
